FAERS Safety Report 21505086 (Version 1)
Quarter: 2022Q4

REPORT INFORMATION
  Report Type: Spontaneous
  Country: US (occurrence: None)
  Receive Date: 20221025
  Receipt Date: 20221025
  Transmission Date: 20230113
  Serious: Yes (Other)
  Sender: FDA-Public Use
  Company Number: None

PATIENT
  Age: 35 Year
  Sex: Female

DRUGS (1)
  1. BUPRENORPHINE HYDROCHLORIDE\NALOXONE HYDROCHLORIDE [Suspect]
     Active Substance: BUPRENORPHINE HYDROCHLORIDE\NALOXONE HYDROCHLORIDE
     Indication: Drug dependence
     Dosage: OTHER QUANTITY : 8MG/2MG;?FREQUENCY : TWICE A DAY;?OTHER ROUTE : SL;?
     Route: 060
     Dates: start: 20181022, end: 20221024

REACTIONS (1)
  - Stomatitis [None]

NARRATIVE: CASE EVENT DATE: 20221024
